FAERS Safety Report 7159626-7 (Version None)
Quarter: 2010Q4

REPORT INFORMATION
  Report Type: 
  Country: None (occurrence: None)
  Receive Date: 20101214
  Receipt Date: 20101025
  Transmission Date: 20110411
  Serious: No
  Sender: FDA-Public Use
  Company Number: US-ASTRAZENECA-2010SE50488

PATIENT
  Age: 63 Year
  Sex: Female
  Weight: 74.8 kg

DRUGS (10)
  1. CRESTOR [Suspect]
     Indication: HYPERCHOLESTEROLAEMIA
     Route: 048
  2. CRESTOR [Suspect]
     Indication: HYPERTRIGLYCERIDAEMIA
     Route: 048
  3. PROZAC [Concomitant]
  4. ASPIRIN [Concomitant]
  5. PREMARIN [Concomitant]
  6. ALLOPURINOL [Concomitant]
  7. TRIAMTERENE [Concomitant]
  8. TRAMADOL [Concomitant]
  9. DICLOFENAC SODIUM [Concomitant]
  10. CELEBREX [Concomitant]

REACTIONS (7)
  - BLOOD URIC ACID INCREASED [None]
  - BODY HEIGHT DECREASED [None]
  - GOUT [None]
  - JOINT SWELLING [None]
  - MYALGIA [None]
  - NODULE ON EXTREMITY [None]
  - OSTEOARTHRITIS [None]
